FAERS Safety Report 4949741-8 (Version None)
Quarter: 2006Q1

REPORT INFORMATION
  Report Type: 
  Country: None (occurrence: None)
  Receive Date: 20060321
  Receipt Date: 20051110
  Transmission Date: 20060701
  Serious: Yes (Hospitalization)
  Sender: FDA-Public Use
  Company Number: US-MERCK-0511USA01910

PATIENT
  Age: 63 Year
  Sex: Male
  Weight: 67 kg

DRUGS (10)
  1. VIOXX [Suspect]
     Indication: SPONDYLITIS
     Route: 048
     Dates: start: 20010701, end: 20050101
  2. ASPIRIN [Concomitant]
     Route: 065
  3. PEPCID [Concomitant]
     Route: 065
  4. COLACE [Concomitant]
     Route: 065
  5. POTASSIUM CHLORIDE [Concomitant]
     Route: 065
  6. PERCOCET [Concomitant]
     Route: 065
  7. MORPHINE [Concomitant]
     Route: 065
  8. CLONIDINE [Concomitant]
     Route: 065
  9. METOPROLOL [Concomitant]
     Route: 065
  10. AMBIEN [Concomitant]
     Route: 065

REACTIONS (9)
  - CORONARY ARTERY DISEASE [None]
  - DYSLIPIDAEMIA [None]
  - EJECTION FRACTION DECREASED [None]
  - HYPOKINESIA [None]
  - NEURITIS [None]
  - PAIN IN EXTREMITY [None]
  - PERONEAL NERVE PALSY [None]
  - PNEUMONIA [None]
  - THROMBOSIS [None]
